FAERS Safety Report 15372922 (Version 1)
Quarter: 2018Q3

REPORT INFORMATION
  Report Type: Report from Study
  Country: None (occurrence: GB)
  Receive Date: 20180912
  Receipt Date: 20180912
  Transmission Date: 20181010
  Serious: Yes (Hospitalization)
  Sender: FDA-Public Use
  Company Number: GB-ABBVIE-18K-167-2479206-00

PATIENT
  Age: 52 Year
  Sex: Male

DRUGS (1)
  1. HUMIRA [Suspect]
     Active Substance: ADALIMUMAB
     Indication: PSORIATIC ARTHROPATHY
     Route: 058
     Dates: start: 20170906, end: 20180426

REACTIONS (4)
  - Cardiac arrest [Unknown]
  - Pneumonia [Unknown]
  - Alcoholic liver disease [Unknown]
  - Anal abscess [Unknown]

NARRATIVE: CASE EVENT DATE: 20180421
